FAERS Safety Report 4626644-X (Version None)
Quarter: 2005Q1

REPORT INFORMATION
  Report Type: 
  Country: None (occurrence: None)
  Receive Date: 20050330
  Receipt Date: 20050318
  Transmission Date: 20050727
  Serious: Yes (Hospitalization)
  Sender: FDA-Public Use
  Company Number: 200503IM000090

PATIENT
  Age: 50 Year
  Sex: Male
  Weight: 107.0489 kg

DRUGS (6)
  1. INFERGEN (INTERFERON ALFACON-1) [Suspect]
     Indication: HEPATITIS C
     Dosage: 15 UG, TIW, SUBCUTANEOUS
     Route: 058
     Dates: start: 20050221, end: 20050301
  2. RIBAVIRIN [Concomitant]
  3. LISINOPRIL [Concomitant]
  4. TERAZOSIN [Concomitant]
  5. MOTRIN [Concomitant]
  6. FINASTERIDE [Concomitant]

REACTIONS (9)
  - BLOOD CREATININE INCREASED [None]
  - BLOOD POTASSIUM INCREASED [None]
  - BLOOD UREA INCREASED [None]
  - DIABETIC KETOACIDOSIS [None]
  - GROIN ABSCESS [None]
  - INFUSION SITE ABSCESS [None]
  - IRRITABILITY [None]
  - PANCREATITIS ACUTE [None]
  - WEIGHT DECREASED [None]
